FAERS Safety Report 5656224-9 (Version None)
Quarter: 2008Q1

REPORT INFORMATION
  Report Type: 
  Country: None (occurrence: None)
  Receive Date: 20080305
  Receipt Date: 20080219
  Transmission Date: 20080703
  Serious: Yes (Death, Hospitalization, Other)
  Sender: FDA-Public Use
  Company Number: 2008US000601

PATIENT
  Age: 62 Year
  Sex: Female

DRUGS (6)
  1. AMBISOME [Suspect]
     Indication: ZYGOMYCOSIS
     Dosage: 7 UG/KG, UID/QD, IV DRIP
     Route: 041
     Dates: start: 20071018
  2. NOXAFIL [Suspect]
     Indication: ZYGOMYCOSIS
     Dosage: 10 ML, BID, ORAL
     Route: 048
     Dates: start: 20071026, end: 20071125
  3. MEDROL [Concomitant]
  4. THEOPHYLLINE [Concomitant]
  5. ZOVIRAX [Concomitant]
  6. LOSEC (OMEPRAZOLE MAGNESIUM) [Concomitant]

REACTIONS (6)
  - BLOOD ALKALINE PHOSPHATASE INCREASED [None]
  - GAMMA-GLUTAMYLTRANSFERASE INCREASED [None]
  - HEPATOTOXICITY [None]
  - MYOCARDIAL INFARCTION [None]
  - RESPIRATORY FAILURE [None]
  - ZYGOMYCOSIS [None]
